FAERS Safety Report 5151801-6 (Version None)
Quarter: 2006Q4

REPORT INFORMATION
  Report Type: 
  Country: None (occurrence: None)
  Receive Date: 20061115
  Receipt Date: 20061106
  Transmission Date: 20070319
  Serious: Yes (Hospitalization)
  Sender: FDA-Public Use
  Company Number: JP-NOVOPROD-258475

PATIENT
  Age: 58 Year
  Sex: Male

DRUGS (2)
  1. NOVOLIN R [Suspect]
     Indication: INSULIN-REQUIRING TYPE II DIABETES MELLITUS
     Dosage: 300 IU, QD
     Route: 058
     Dates: start: 20061103, end: 20061103
  2. NOVOLIN R [Suspect]
     Dosage: 30 IU, QD
     Route: 058

REACTIONS (2)
  - HYPOGLYCAEMIA [None]
  - SUICIDE ATTEMPT [None]
